FAERS Safety Report 16397648 (Version 2)
Quarter: 2019Q3

REPORT INFORMATION
  Report Type: Report from Study
  Country: CA (occurrence: CA)
  Receive Date: 20190606
  Receipt Date: 20190802
  Transmission Date: 20191004
  Serious: Yes (Hospitalization, Other)
  Sender: FDA-Public Use
  Company Number: CA-ROCHE-2320782

PATIENT
  Age: 78 Year
  Sex: Female
  Weight: 83 kg

DRUGS (43)
  1. ACTEMRA [Suspect]
     Active Substance: TOCILIZUMAB
     Indication: RHEUMATOID ARTHRITIS
     Route: 042
     Dates: start: 20140625, end: 20140724
  2. ACTEMRA [Suspect]
     Active Substance: TOCILIZUMAB
     Route: 042
     Dates: start: 20160316, end: 20160316
  3. ACTEMRA [Suspect]
     Active Substance: TOCILIZUMAB
     Route: 042
     Dates: start: 20190305, end: 20190625
  4. ACTEMRA [Suspect]
     Active Substance: TOCILIZUMAB
     Route: 042
     Dates: start: 20140917, end: 20140917
  5. ACTEMRA [Suspect]
     Active Substance: TOCILIZUMAB
     Route: 042
     Dates: start: 20141118, end: 20141118
  6. ACTEMRA [Suspect]
     Active Substance: TOCILIZUMAB
     Route: 042
     Dates: start: 20160706, end: 20160706
  7. ACTEMRA [Suspect]
     Active Substance: TOCILIZUMAB
     Route: 042
     Dates: start: 20160830, end: 20161012
  8. ACTEMRA [Suspect]
     Active Substance: TOCILIZUMAB
     Route: 042
     Dates: start: 20190205, end: 20190205
  9. MAVIK [Concomitant]
     Active Substance: TRANDOLAPRIL
     Indication: OFF LABEL USE
     Route: 065
  10. PREDNISONE. [Concomitant]
     Active Substance: PREDNISONE
     Indication: OFF LABEL USE
     Route: 065
  11. ACTEMRA [Suspect]
     Active Substance: TOCILIZUMAB
     Route: 042
     Dates: start: 20160217, end: 20160217
  12. ACTEMRA [Suspect]
     Active Substance: TOCILIZUMAB
     Route: 042
     Dates: start: 20170201, end: 20180619
  13. ACTEMRA [Suspect]
     Active Substance: TOCILIZUMAB
     Route: 042
     Dates: start: 20181211, end: 20190110
  14. ROSUVASTATIN. [Concomitant]
     Active Substance: ROSUVASTATIN
     Indication: OFF LABEL USE
     Route: 065
  15. TOPIRAMATE. [Concomitant]
     Active Substance: TOPIRAMATE
     Indication: OFF LABEL USE
     Route: 065
  16. ACTEMRA [Suspect]
     Active Substance: TOCILIZUMAB
     Route: 042
     Dates: start: 20141216, end: 20141216
  17. ACTEMRA [Suspect]
     Active Substance: TOCILIZUMAB
     Route: 042
     Dates: start: 20150113, end: 20150613
  18. ACTEMRA [Suspect]
     Active Substance: TOCILIZUMAB
     Route: 042
     Dates: start: 20160413, end: 20160413
  19. ACTEMRA [Suspect]
     Active Substance: TOCILIZUMAB
     Route: 042
     Dates: start: 20160511, end: 20160609
  20. ACTEMRA [Suspect]
     Active Substance: TOCILIZUMAB
     Route: 042
     Dates: start: 20190723
  21. D-TABS [Concomitant]
     Active Substance: CHOLECALCIFEROL
     Indication: OFF LABEL USE
     Route: 065
  22. PANTOPRAZOLE [Concomitant]
     Active Substance: PANTOPRAZOLE
     Indication: OFF LABEL USE
     Route: 065
  23. TRAZODONE [Concomitant]
     Active Substance: TRAZODONE HYDROCHLORIDE
     Indication: OFF LABEL USE
     Route: 065
  24. ACTEMRA [Suspect]
     Active Substance: TOCILIZUMAB
     Route: 042
     Dates: start: 20150211, end: 20150211
  25. ACTEMRA [Suspect]
     Active Substance: TOCILIZUMAB
     Route: 042
     Dates: start: 20161109, end: 20161206
  26. ACTEMRA [Suspect]
     Active Substance: TOCILIZUMAB
     Route: 042
     Dates: start: 20170105, end: 20170105
  27. ATIVAN [Concomitant]
     Active Substance: LORAZEPAM
     Indication: OFF LABEL USE
     Route: 065
  28. LUTEIN [XANTOFYL] [Concomitant]
     Indication: OFF LABEL USE
     Route: 065
  29. QUETIAPINE. [Concomitant]
     Active Substance: QUETIAPINE
     Indication: OFF LABEL USE
     Route: 065
  30. SERTRALINE [Concomitant]
     Active Substance: SERTRALINE HYDROCHLORIDE
     Indication: OFF LABEL USE
     Route: 065
  31. ACETYLSALICYLIC ACID [Concomitant]
     Active Substance: ASPIRIN
     Indication: OFF LABEL USE
  32. ACTEMRA [Suspect]
     Active Substance: TOCILIZUMAB
     Route: 042
     Dates: start: 20141017, end: 20141017
  33. ACTEMRA [Suspect]
     Active Substance: TOCILIZUMAB
     Route: 042
     Dates: start: 20160803, end: 20160803
  34. ACETAMINOPHEN. [Concomitant]
     Active Substance: ACETAMINOPHEN
     Indication: OFF LABEL USE
     Route: 065
  35. BISOPROLOL [Concomitant]
     Active Substance: BISOPROLOL
     Indication: OFF LABEL USE
     Route: 065
  36. ACTEMRA [Suspect]
     Active Substance: TOCILIZUMAB
     Indication: OFF LABEL USE
     Route: 042
     Dates: start: 20140820, end: 20140820
  37. ACTEMRA [Suspect]
     Active Substance: TOCILIZUMAB
     Route: 042
     Dates: start: 20150407, end: 20150506
  38. ACTEMRA [Suspect]
     Active Substance: TOCILIZUMAB
     Route: 042
     Dates: start: 20150608, end: 20151028
  39. ACTEMRA [Suspect]
     Active Substance: TOCILIZUMAB
     Route: 042
     Dates: start: 20151125, end: 20160120
  40. ACTEMRA [Suspect]
     Active Substance: TOCILIZUMAB
     Route: 042
     Dates: start: 20180720, end: 20180815
  41. ACTEMRA [Suspect]
     Active Substance: TOCILIZUMAB
     Route: 042
     Dates: start: 20180912, end: 20181205
  42. MIRTAZAPINE. [Concomitant]
     Active Substance: MIRTAZAPINE
     Indication: OFF LABEL USE
     Route: 065
  43. ACTEMRA [Suspect]
     Active Substance: TOCILIZUMAB
     Route: 042
     Dates: start: 20150312, end: 20150312

REACTIONS (13)
  - Blood pressure systolic increased [Unknown]
  - Off label use [Unknown]
  - Weight increased [Unknown]
  - Oxygen saturation decreased [Unknown]
  - Infusion site oedema [Recovered/Resolved]
  - Pain in extremity [Not Recovered/Not Resolved]
  - Fall [Unknown]
  - Infusion related reaction [Unknown]
  - Fracture pain [Unknown]
  - Sternal fracture [Unknown]
  - Asthenia [Unknown]
  - Arthralgia [Not Recovered/Not Resolved]
  - Product use issue [Unknown]

NARRATIVE: CASE EVENT DATE: 20140625
